FAERS Safety Report 9860318 (Version 1)
Quarter: 2014Q1

REPORT INFORMATION
  Report Type: Spontaneous
  Country: US (occurrence: US)
  Receive Date: 20140201
  Receipt Date: 20140201
  Transmission Date: 20141002
  Serious: No
  Sender: FDA-Public Use
  Company Number: US-009507513-1401USA005311

PATIENT
  Sex: Female

DRUGS (1)
  1. NUVARING [Suspect]
     Dosage: AS DIRECTED
     Route: 067
     Dates: start: 201305

REACTIONS (3)
  - Device expulsion [Unknown]
  - Drug administration error [Unknown]
  - Product quality issue [Unknown]
